FAERS Safety Report 23613936 (Version 2)
Quarter: 2024Q2

REPORT INFORMATION
  Report Type: Report from Study
  Country: IT (occurrence: IT)
  Receive Date: 20240310
  Receipt Date: 20240506
  Transmission Date: 20240716
  Serious: Yes (Hospitalization, Other)
  Sender: FDA-Public Use
  Company Number: None

PATIENT
  Age: 15 Year
  Sex: Female
  Weight: 36 kg

DRUGS (6)
  1. VINCRISTINE [Suspect]
     Active Substance: VINCRISTINE
     Indication: Ewing^s sarcoma
     Dosage: TEVA, VINCRISTINA
     Route: 042
     Dates: start: 20240102, end: 20240102
  2. COSMEGEN [Suspect]
     Active Substance: DACTINOMYCIN
     Indication: Ewing^s sarcoma
     Route: 042
     Dates: start: 20240102, end: 20240102
  3. ONDANSETRON HYDROCHLORIDE [Concomitant]
     Active Substance: ONDANSETRON HYDROCHLORIDE
     Indication: Prophylaxis of nausea and vomiting
     Route: 042
     Dates: start: 20240102, end: 20240104
  4. DECADRON [Concomitant]
     Active Substance: DEXAMETHASONE
     Indication: Prophylaxis of nausea and vomiting
     Route: 042
     Dates: start: 20240102, end: 20240103
  5. IFOSFAMIDE [Suspect]
     Active Substance: IFOSFAMIDE
     Indication: Ewing^s sarcoma
     Route: 042
     Dates: start: 20240102, end: 20240103
  6. MESNA [Concomitant]
     Active Substance: MESNA
     Indication: Chemotherapy urothelial toxicity attenuation
     Dosage: DAY 02 AND 03/01/2024?4440 MG/DAY DAY 03 AND 04/01/2024
     Route: 042
     Dates: start: 20240102, end: 20240104

REACTIONS (6)
  - Anaemia [Recovered/Resolved]
  - Febrile neutropenia [Recovered/Resolved]
  - Leukopenia [Not Recovered/Not Resolved]
  - Mucosal inflammation [Recovering/Resolving]
  - Vomiting [Recovered/Resolved]
  - Pancytopenia [Recovered/Resolved]

NARRATIVE: CASE EVENT DATE: 20240104
